FAERS Safety Report 7614536-3 (Version None)
Quarter: 2011Q3

REPORT INFORMATION
  Report Type: 
  Country: None (occurrence: None)
  Receive Date: 20110708
  Receipt Date: 20110414
  Transmission Date: 20111222
  Serious: No
  Sender: FDA-Public Use
  Company Number: 2011IP000069

PATIENT
  Age: 32 Year
  Sex: Female

DRUGS (3)
  1. BEPREVE [Suspect]
     Indication: CONJUNCTIVITIS
     Dosage: 1 GTT;OPH
     Route: 047
     Dates: start: 20110413, end: 20110413
  2. BEPREVE [Suspect]
     Indication: CONTACT LENS INTOLERANCE
     Dosage: 1 GTT;OPH
     Route: 047
     Dates: start: 20110413, end: 20110413
  3. LOTEMAX [Concomitant]

REACTIONS (1)
  - PRODUCT TASTE ABNORMAL [None]
